FAERS Safety Report 10182921 (Version 1)
Quarter: 2014Q2

REPORT INFORMATION
  Report Type: Spontaneous
  Country: US (occurrence: US)
  Receive Date: 20140520
  Receipt Date: 20140520
  Transmission Date: 20141212
  Serious: No
  Sender: FDA-Public Use
  Company Number: US-PFIZER INC-2014135242

PATIENT
  Age: 57 Year
  Sex: Female
  Weight: 95.24 kg

DRUGS (6)
  1. LYRICA [Suspect]
     Indication: TRIGEMINAL NEURALGIA
     Dosage: 25 MG, 3X/DAY
     Dates: start: 201404
  2. LYRICA [Suspect]
     Dosage: 50 MG, 3X/DAY
  3. GILENYA [Concomitant]
     Indication: MULTIPLE SCLEROSIS
     Dosage: UNK, DAILY
  4. FOLIC ACID [Concomitant]
     Dosage: UNK
  5. TROSPIUM CHLORIDE [Concomitant]
     Dosage: UNK
  6. CARBAMAZEPINE [Concomitant]
     Dosage: UNK

REACTIONS (1)
  - Peripheral swelling [Not Recovered/Not Resolved]
